FAERS Safety Report 25826791 (Version 1)
Quarter: 2025Q3

REPORT INFORMATION
  Report Type: Spontaneous
  Country: EU (occurrence: EU)
  Receive Date: 20250920
  Receipt Date: 20250920
  Transmission Date: 20251021
  Serious: Yes (Other)
  Sender: ABBVIE
  Company Number: EU-MLMSERVICE-20250905-PI634345-00117-1

PATIENT
  Age: 61 Year
  Sex: Female

DRUGS (7)
  1. DEXAMETHASONE [Suspect]
     Active Substance: DEXAMETHASONE
     Indication: Iridocyclitis
     Route: 050
  2. DEXAMETHASONE [Suspect]
     Active Substance: DEXAMETHASONE
     Indication: Anterior chamber inflammation
     Route: 050
  3. DEXAMETHASONE [Suspect]
     Active Substance: DEXAMETHASONE
     Indication: Keratic precipitates
  4. TROPICAMIDE [Concomitant]
     Active Substance: TROPICAMIDE
     Indication: Iridocyclitis
     Route: 065
  5. IBUPROFEN [Concomitant]
     Active Substance: IBUPROFEN
     Indication: Keratic precipitates
     Route: 048
  6. DEXAMETHASONE [Concomitant]
     Active Substance: DEXAMETHASONE
     Indication: Anterior chamber inflammation
     Route: 065
  7. DEXAMETHASONE [Concomitant]
     Active Substance: DEXAMETHASONE
     Indication: Anterior chamber inflammation
     Route: 065

REACTIONS (7)
  - Ophthalmic herpes simplex [Unknown]
  - Retinal haemorrhage [Recovering/Resolving]
  - Optic neuropathy [Recovering/Resolving]
  - Iris transillumination defect [Recovering/Resolving]
  - Choroidal detachment [Recovered/Resolved]
  - Pigment dispersion syndrome [Recovering/Resolving]
  - Pigmentary glaucoma [Recovering/Resolving]
